FAERS Safety Report 8975913 (Version 1)
Quarter: 2012Q4

REPORT INFORMATION
  Report Type: 
  Country: US (occurrence: US)
  Receive Date: 20121219
  Receipt Date: 20121219
  Transmission Date: 20130627
  Serious: No
  Sender: FDA-Public Use
  Company Number: US-AMGEN-USASP2012069486

PATIENT
  Age: 62 Year
  Sex: Female

DRUGS (6)
  1. XGEVA [Suspect]
     Indication: METASTASES TO BONE
     Dosage: 120 mg, q4wk
     Dates: start: 20111208, end: 20120111
  2. LISINOPRIL [Concomitant]
     Dosage: UNK
  3. CITRUCEL [Concomitant]
     Dosage: UNK
  4. METFORMIN [Concomitant]
     Dosage: UNK
  5. LANTUS [Concomitant]
     Dosage: UNK
  6. GEMFIBROZIL [Concomitant]
     Dosage: UNK

REACTIONS (1)
  - Rash [Recovered/Resolved]
